FAERS Safety Report 11269381 (Version 2)
Quarter: 2015Q4

REPORT INFORMATION
  Report Type: Report from Study
  Country: US (occurrence: US)
  Receive Date: 20150714
  Receipt Date: 20151224
  Transmission Date: 20160304
  Serious: Yes (Hospitalization)
  Sender: FDA-Public Use
  Company Number: US-AMGEN-USASP2015068382

PATIENT
  Age: 1 Year
  Sex: Male

DRUGS (1)
  1. ENBREL [Suspect]
     Active Substance: ETANERCEPT
     Indication: EXPOSURE DURING PREGNANCY
     Dosage: 50 MG, QWK
     Route: 064
     Dates: start: 201109

REACTIONS (6)
  - Blood glucose decreased [Recovered/Resolved]
  - Weight decrease neonatal [Recovered/Resolved]
  - Premature baby [Recovered/Resolved]
  - Apnoea neonatal [Recovered/Resolved]
  - Jaundice neonatal [Recovered/Resolved]
  - Nervous system disorder [Recovered/Resolved]

NARRATIVE: CASE EVENT DATE: 20131129
